FAERS Safety Report 10006317 (Version 1)
Quarter: 2014Q1

REPORT INFORMATION
  Report Type: Report from Study
  Country: US (occurrence: US)
  Receive Date: 20140313
  Receipt Date: 20140313
  Transmission Date: 20141002
  Serious: Yes (Hospitalization)
  Sender: FDA-Public Use
  Company Number: US-SA-2014SA031989

PATIENT
  Age: 84 Year
  Sex: Female

DRUGS (8)
  1. DRONEDARONE [Suspect]
     Indication: PRODUCT USED FOR UNKNOWN INDICATION
     Route: 065
  2. DABIGATRAN [Interacting]
     Indication: PRODUCT USED FOR UNKNOWN INDICATION
     Route: 065
  3. PROTONIX [Concomitant]
  4. POTASSIUM [Concomitant]
  5. PLAVIX [Concomitant]
  6. BUMETANIDE [Concomitant]
  7. LEVOTHROID [Concomitant]
  8. FLAGYL [Concomitant]

REACTIONS (5)
  - Diarrhoea haemorrhagic [Unknown]
  - Drug interaction [Unknown]
  - Melaena [Unknown]
  - Haematochezia [Unknown]
  - Rectal haemorrhage [Unknown]
